FAERS Safety Report 20077615 (Version 1)
Quarter: 2021Q4

REPORT INFORMATION
  Report Type: Spontaneous
  Country: FI (occurrence: FI)
  Receive Date: 20211116
  Receipt Date: 20211116
  Transmission Date: 20220303
  Serious: Yes (Life-Threatening, Other)
  Sender: FDA-Public Use
  Company Number: None

PATIENT
  Age: 31 Year
  Sex: Male

DRUGS (1)
  1. CLOZAPINE [Suspect]
     Active Substance: CLOZAPINE
     Indication: Schizophrenia
     Dosage: UNK
     Route: 048

REACTIONS (8)
  - Anxiety [Unknown]
  - Gait disturbance [Unknown]
  - Feeling abnormal [Unknown]
  - Fear of death [Unknown]
  - Insomnia [Unknown]
  - Pyrexia [Unknown]
  - Salivary hypersecretion [Unknown]
  - Dysphagia [Unknown]
